FAERS Safety Report 18935599 (Version 1)
Quarter: 2021Q1

REPORT INFORMATION
  Report Type: Report from Study
  Country: US (occurrence: US)
  Receive Date: 20210224
  Receipt Date: 20210224
  Transmission Date: 20210420
  Serious: Yes (Life-Threatening, Hospitalization)
  Sender: FDA-Public Use
  Company Number: NVSC2021US037776

PATIENT
  Sex: Male

DRUGS (1)
  1. ENTRESTO [Suspect]
     Active Substance: SACUBITRIL\VALSARTAN
     Indication: PRODUCT USED FOR UNKNOWN INDICATION
     Dosage: 50 MG (24/26 MG)
     Route: 048
     Dates: start: 20210209

REACTIONS (6)
  - Cardiac disorder [Unknown]
  - Decreased activity [Unknown]
  - Iron deficiency [Unknown]
  - Blood pressure decreased [Unknown]
  - Pruritus [Recovering/Resolving]
  - Appetite disorder [Unknown]
